FAERS Safety Report 13463140 (Version 2)
Quarter: 2017Q3

REPORT INFORMATION
  Report Type: Spontaneous
  Country: US (occurrence: US)
  Receive Date: 20170420
  Receipt Date: 20170703
  Transmission Date: 20171127
  Serious: Yes (Other)
  Sender: FDA-Public Use
  Company Number: US-SA-2017SA068134

PATIENT
  Age: 72 Year
  Sex: Male
  Weight: 76.2 kg

DRUGS (3)
  1. BABY ASPIRIN [Suspect]
     Active Substance: ASPIRIN
     Indication: AORTIC VALVE REPLACEMENT
     Dosage: START DATE WAS MARCH 7TH
     Route: 048
  2. ELIQUIS [Concomitant]
     Active Substance: APIXABAN
     Route: 065
  3. PLAVIX [Suspect]
     Active Substance: CLOPIDOGREL BISULFATE
     Indication: AORTIC VALVE REPLACEMENT
     Dosage: START DATE WAS MARCH 7TH
     Route: 048
     Dates: start: 20161227

REACTIONS (2)
  - Eye disorder [Not Recovered/Not Resolved]
  - Cough [Unknown]

NARRATIVE: CASE EVENT DATE: 20170330
